FAERS Safety Report 10390617 (Version 1)
Quarter: 2014Q3

REPORT INFORMATION
  Report Type: Spontaneous
  Country: CH (occurrence: None)
  Receive Date: 20140814
  Receipt Date: 20140814
  Transmission Date: 20150326
  Serious: Yes (Hospitalization)
  Sender: FDA-Public Use
  Company Number: 2014080012

PATIENT
  Age: 69 Year
  Sex: Male

DRUGS (8)
  1. METOLAZON (METOLAZONE) [Suspect]
     Active Substance: METOLAZONE
     Indication: HYPERTENSIVE HEART DISEASE
     Dosage: 10 MG (5 MG,2 IN 1 D)
     Route: 048
     Dates: start: 201302, end: 20140412
  2. HALDOL [Suspect]
     Active Substance: HALOPERIDOL
     Indication: PSYCHOTIC DISORDER
     Dosage: 1MG, 1-0-3 (1 DOSAGE FORMS,4 IN 1 D)
     Route: 048
     Dates: start: 201302, end: 20140412
  3. ALDACTONE [Concomitant]
     Active Substance: SPIRONOLACTONE
  4. FERRUM HAUSMANN (FERROUS FUMARATE) [Concomitant]
  5. TRANSTEC  (BUPRENORPHINE) [Concomitant]
  6. TOREM [Suspect]
     Active Substance: TORSEMIDE
     Indication: HYPERTENSIVE HEART DISEASE
     Dosage: 200 MG, 0.25 - 0.0 (50 MG, 1 IN 1 D) , ORAL
     Route: 048
     Dates: start: 2014, end: 20140412
  7. FINASTERID ACTAVIS (FINASTERIDE) [Concomitant]
  8. PANTOZOL [Concomitant]
     Active Substance: PANTOPRAZOLE SODIUM

REACTIONS (10)
  - Hyponatraemia [None]
  - Drug interaction [None]
  - Syncope [None]
  - Delirium tremens [None]
  - Skull fractured base [None]
  - Fall [None]
  - Traumatic intracranial haemorrhage [None]
  - Convulsion [None]
  - Renal failure [None]
  - Dehydration [None]

NARRATIVE: CASE EVENT DATE: 20140412
